FAERS Safety Report 25997512 (Version 2)
Quarter: 2025Q4

REPORT INFORMATION
  Report Type: Report from Study
  Country: US (occurrence: US)
  Receive Date: 20251104
  Receipt Date: 20251109
  Transmission Date: 20260117
  Serious: Yes (Hospitalization, Other)
  Sender: ABBVIE
  Company Number: US-ABBVIE-6529175

PATIENT
  Age: 66 Year
  Sex: Male
  Weight: 95.707 kg

DRUGS (1)
  1. VYALEV [Suspect]
     Active Substance: FOSCARBIDOPA\FOSLEVODOPA
     Indication: Parkinson^s disease
     Dosage: 24 HOUR INFUSION
     Route: 058
     Dates: start: 20250926

REACTIONS (9)
  - Abdominal infection [Unknown]
  - Infusion site erythema [Recovering/Resolving]
  - Infusion site swelling [Recovering/Resolving]
  - Staphylococcal infection [Recovering/Resolving]
  - Infusion site pain [Recovering/Resolving]
  - Infusion site nodule [Recovering/Resolving]
  - Infusion site pruritus [Recovering/Resolving]
  - Infusion site reaction [Recovering/Resolving]
  - Infusion site infection [Recovering/Resolving]

NARRATIVE: CASE EVENT DATE: 20250101
